FAERS Safety Report 13658608 (Version 1)
Quarter: 2017Q2

REPORT INFORMATION
  Report Type: Spontaneous
  Country: US (occurrence: US)
  Receive Date: 20170616
  Receipt Date: 20170616
  Transmission Date: 20170830
  Serious: No
  Sender: FDA-Public Use
  Company Number: US-009507513-1705USA010326

PATIENT
  Sex: Female

DRUGS (2)
  1. NEXPLANON [Suspect]
     Active Substance: ETONOGESTREL
     Indication: CONTRACEPTION
     Dosage: 1 ROD, UNK
     Route: 059
  2. NEXPLANON [Suspect]
     Active Substance: ETONOGESTREL
     Dosage: SECOND ROD, UNK
     Route: 059

REACTIONS (5)
  - Overdose [Unknown]
  - Weight increased [Unknown]
  - Device difficult to use [Not Recovered/Not Resolved]
  - Incorrect drug administration duration [Unknown]
  - Complication associated with device [Not Recovered/Not Resolved]
